FAERS Safety Report 21488625 (Version 1)
Quarter: 2022Q4

REPORT INFORMATION
  Report Type: Spontaneous
  Country: US (occurrence: None)
  Receive Date: 20221020
  Receipt Date: 20221020
  Transmission Date: 20230113
  Serious: No
  Sender: FDA-Public Use
  Company Number: None

PATIENT
  Age: 22 Year
  Sex: Male

DRUGS (1)
  1. SIROLIMUS [Suspect]
     Active Substance: SIROLIMUS
     Dosage: 3.5MG DAILY ORAL?
     Route: 048
     Dates: start: 202208

REACTIONS (3)
  - Off label use [None]
  - Graft versus host disease [None]
  - Bone marrow transplant [None]

NARRATIVE: CASE EVENT DATE: 20220930
